FAERS Safety Report 8268576-4 (Version None)
Quarter: 2012Q2

REPORT INFORMATION
  Report Type: 
  Country: None (occurrence: None)
  Receive Date: 20120409
  Receipt Date: 20120403
  Transmission Date: 20120825
  Serious: No
  Sender: FDA-Public Use
  Company Number: US-BAYER-2012-032401

PATIENT
  Sex: Female

DRUGS (2)
  1. YAZ [Suspect]
     Dosage: UNK
     Route: 048
  2. LEVONORGESTREL [Suspect]

REACTIONS (3)
  - ABDOMINAL PAIN LOWER [None]
  - METRORRHAGIA [None]
  - NO ADVERSE EVENT [None]
